FAERS Safety Report 7210712-2 (Version None)
Quarter: 2011Q1

REPORT INFORMATION
  Report Type: 
  Country: None (occurrence: None)
  Receive Date: 20110105
  Receipt Date: 20101228
  Transmission Date: 20110831
  Serious: No
  Sender: FDA-Public Use
  Company Number: US-PFIZER INC-2010181230

PATIENT
  Sex: Female
  Weight: 83.9 kg

DRUGS (8)
  1. CALCIUM [Concomitant]
  2. MULTI-VITAMINS [Concomitant]
  3. CRESTOR [Concomitant]
  4. FISH OIL [Concomitant]
  5. FOLATE [Concomitant]
  6. CELEBREX [Suspect]
     Indication: ARTHRITIS
     Dosage: 200 MG, 1X/DAY
  7. ZETIA [Concomitant]
  8. POTASSIUM [Concomitant]

REACTIONS (2)
  - DRUG INEFFECTIVE [None]
  - FOOD INTERACTION [None]
